FAERS Safety Report 6617612-7 (Version None)
Quarter: 2010Q1

REPORT INFORMATION
  Report Type: 
  Country: None (occurrence: None)
  Receive Date: 20100223
  Receipt Date: 20100112
  Transmission Date: 20100710
  Serious: Yes (Hospitalization)
  Sender: FDA-Public Use
  Company Number: 004271

PATIENT
  Sex: Female
  Weight: 60 kg

DRUGS (3)
  1. CIMZIA [Suspect]
     Indication: CROHN'S DISEASE
     Dosage: (SUBCUTANEOUS)
     Route: 058
  2. IMURAN [Concomitant]
  3. PREDNISONE [Concomitant]

REACTIONS (5)
  - EATING DISORDER [None]
  - EYE DISCHARGE [None]
  - EYE PAIN [None]
  - OCULAR HYPERAEMIA [None]
  - ORAL HERPES [None]
